FAERS Safety Report 23237066 (Version 3)
Quarter: 2023Q4

REPORT INFORMATION
  Report Type: Spontaneous
  Country: US (occurrence: US)
  Receive Date: 20231128
  Receipt Date: 20231215
  Transmission Date: 20240109
  Serious: Yes (Death, Hospitalization, Other)
  Sender: FDA-Public Use
  Company Number: US-DAIICHI SANKYO, INC.-DSU-2023-148391AA

PATIENT
  Sex: Female

DRUGS (3)
  1. VANFLYTA [Suspect]
     Active Substance: QUIZARTINIB DIHYDROCHLORIDE
     Indication: Acute myeloid leukaemia
     Dosage: 17.7 MG
     Route: 065
     Dates: start: 20230915
  2. VANFLYTA [Suspect]
     Active Substance: QUIZARTINIB DIHYDROCHLORIDE
     Dosage: 17.7 MG, QD
     Route: 048
     Dates: start: 202310
  3. VANFLYTA [Suspect]
     Active Substance: QUIZARTINIB DIHYDROCHLORIDE
     Dosage: 17.7 MG
     Route: 048

REACTIONS (11)
  - Cardiac arrest [Fatal]
  - Oxygen saturation decreased [Unknown]
  - Haemolysis [Unknown]
  - Endotracheal intubation [Unknown]
  - Hypoxia [Unknown]
  - Febrile neutropenia [Unknown]
  - Septic shock [Unknown]
  - Electrocardiogram QT prolonged [Unknown]
  - Clostridial infection [Unknown]
  - Methaemoglobinaemia [Unknown]
  - Nausea [Unknown]

NARRATIVE: CASE EVENT DATE: 20230101
